FAERS Safety Report 22659888 (Version 1)
Quarter: 2023Q2

REPORT INFORMATION
  Report Type: Spontaneous
  Country: GB (occurrence: None)
  Receive Date: 20230630
  Receipt Date: 20230630
  Transmission Date: 20230722
  Serious: Yes (Other)
  Sender: FDA-Public Use
  Company Number: 2023A145591

PATIENT
  Sex: Male
  Weight: 84 kg

DRUGS (6)
  1. DAPAGLIFLOZIN [Suspect]
     Active Substance: DAPAGLIFLOZIN
     Indication: Left ventricular failure
     Dosage: 10 MG ONCE DAILY; ;
  2. BISOPROLOL [Concomitant]
     Active Substance: BISOPROLOL
     Indication: Left ventricular failure
  3. CANDESARTAN [Concomitant]
     Active Substance: CANDESARTAN
  4. EDOXABAN [Concomitant]
     Active Substance: EDOXABAN
     Indication: Atrial fibrillation
  5. EPLERENONE [Concomitant]
     Active Substance: EPLERENONE
     Indication: Left ventricular failure
  6. TRELEGY ELLIPTA [Concomitant]
     Active Substance: FLUTICASONE FUROATE\UMECLIDINIUM BROMIDE\VILANTEROL TRIFENATATE

REACTIONS (3)
  - Urticaria [Recovered/Resolved]
  - Phimosis [Recovered/Resolved]
  - Pollakiuria [Recovered/Resolved]
